FAERS Safety Report 8963226 (Version 1)
Quarter: 2012Q4

REPORT INFORMATION
  Report Type: Report from Study
  Country: US (occurrence: US)
  Receive Date: 20121213
  Receipt Date: 20121213
  Transmission Date: 20130627
  Serious: Yes (Hospitalization, Other)
  Sender: FDA-Public Use
  Company Number: US-ABBOTT-12P-163-1017686-00

PATIENT
  Sex: Female

DRUGS (16)
  1. HUMIRA PEN [Suspect]
     Indication: CROHN^S DISEASE
     Dates: start: 2011, end: 201209
  2. AMITRIPTYLINE [Concomitant]
     Indication: NEUROPATHY PERIPHERAL
     Dosage: At bedtime
  3. ASA [Concomitant]
     Indication: PRODUCT USED FOR UNKNOWN INDICATION
     Dosage: Daily
  4. LUMIGAN [Concomitant]
     Indication: GLAUCOMA
     Dosage: 1 Gtt each eye
  5. KLONOPIN [Concomitant]
     Indication: STRESS
     Dosage: Up to 4 daily
  6. GEN TEAL [Concomitant]
     Indication: DRY EYE
  7. LOTEMAX [Concomitant]
     Indication: DRY EYE
  8. INSULIN [Concomitant]
     Indication: PRODUCT USED FOR UNKNOWN INDICATION
     Dosage: 70/30, Up to 40 units daily
  9. HYDROCODONE [Concomitant]
     Indication: PRODUCT USED FOR UNKNOWN INDICATION
     Dosage: 10/325 mg, one every 6 hours up to 4 daily
  10. XOPENEX [Concomitant]
     Indication: PRODUCT USED FOR UNKNOWN INDICATION
     Dosage: Per nebulizer as required
  11. LOVASTATIN [Concomitant]
     Indication: BLOOD CHOLESTEROL INCREASED
     Dosage: Daily
  12. ANTIVERT [Concomitant]
     Indication: VERTIGO
  13. METOPROLOL [Concomitant]
     Indication: HYPERTENSION
  14. PRILOSEC [Concomitant]
     Indication: GASTROOESOPHAGEAL REFLUX DISEASE
  15. ZOLOFT [Concomitant]
     Indication: DEPRESSION
     Dosage: Daily
  16. VERAPAMIL [Concomitant]
     Indication: TACHYCARDIA
     Dosage: At bedtime

REACTIONS (15)
  - Gastric ulcer [Recovered/Resolved]
  - Abdominal abscess [Recovered/Resolved]
  - Anastomotic ulcer [Recovered/Resolved]
  - Postoperative abscess [Recovered/Resolved]
  - Infection [Recovered/Resolved]
  - Bronchitis [Recovered/Resolved]
  - Hernia [Recovered/Resolved]
  - Wound dehiscence [Recovered/Resolved]
  - Cellulitis [Recovered/Resolved]
  - Incisional hernia [Not Recovered/Not Resolved]
  - Crohn^s disease [Recovered/Resolved]
  - Abdominal pain upper [Recovered/Resolved]
  - Staphylococcal infection [Unknown]
  - Wound infection staphylococcal [Recovered/Resolved]
  - Colitis [Not Recovered/Not Resolved]
